FAERS Safety Report 4269762-0 (Version None)
Quarter: 2004Q1

REPORT INFORMATION
  Report Type: 
  Country: None (occurrence: None)
  Receive Date: 20040113
  Receipt Date: 20030926
  Transmission Date: 20041129
  Serious: Yes (Hospitalization)
  Sender: FDA-Public Use
  Company Number: WAES 0309USA03244

PATIENT
  Age: 18 Year
  Sex: Female

DRUGS (1)
  1. STROMECTOL [Suspect]
     Route: 048
     Dates: start: 20030622, end: 20030622

REACTIONS (4)
  - COMA [None]
  - LOSS OF CONSCIOUSNESS [None]
  - MYALGIA [None]
  - SOMNOLENCE [None]
